FAERS Safety Report 9693152 (Version 1)
Quarter: 2013Q4

REPORT INFORMATION
  Report Type: Spontaneous
  Country: GB (occurrence: None)
  Receive Date: 20131114
  Receipt Date: 20131114
  Transmission Date: 20140711
  Serious: Yes (Life-Threatening, Hospitalization)
  Sender: FDA-Public Use
  Company Number: CL-531-2013

PATIENT
  Age: 88 Year
  Sex: Male

DRUGS (18)
  1. FLUCONAZOLE [Suspect]
     Route: 048
     Dates: start: 20130830, end: 20130904
  2. BENDROFLUMETHIAZIDE [Suspect]
     Route: 048
     Dates: end: 20130904
  3. ALLOPURINOL [Concomitant]
  4. METFORMIN [Concomitant]
  5. CETIRIZINE [Concomitant]
  6. NYSTATIN [Concomitant]
  7. OTOMIZE (DEXAMETHASONE, GLACIAL ACETIC ACID, NEOMYCIN SULPHATE) [Concomitant]
  8. SIMVASTATIN [Concomitant]
  9. TAMSULOSIN [Concomitant]
  10. TIOTROPIUM [Concomitant]
  11. SALMETEROL [Concomitant]
  12. FLUTICASONE [Concomitant]
  13. MACROGOL 3350 [Concomitant]
  14. POLYETHYLENE GLYCOL 3350 [Concomitant]
  15. POTASSIUM CHLORIDE [Concomitant]
  16. SODIUM BICARBONATE [Concomitant]
  17. SODIUM CHLORIDE [Concomitant]
  18. SODIUM HYDROGEN CARBONATE [Suspect]

REACTIONS (3)
  - Delirium [None]
  - Hyponatraemia [None]
  - Renal impairment [None]
